FAERS Safety Report 8574311 (Version 4)
Quarter: 2012Q4

REPORT INFORMATION
  Report Type: 
  Country: US (occurrence: US)
  Receive Date: 20120522
  Receipt Date: 20121120
  Transmission Date: 20130627
  Serious: Yes (Hospitalization)
  Sender: FDA-Public Use
  Company Number: US-ACTELION-A-US2012-65812

PATIENT
  Age: 65 Year
  Sex: Female

DRUGS (3)
  1. TRACLEER [Suspect]
     Indication: PULMONARY ARTERIAL HYPERTENSION
     Dosage: UNK
     Route: 048
  2. ASPIRIN [Concomitant]
  3. OXYGEN [Concomitant]

REACTIONS (7)
  - Disease complication [Unknown]
  - Asthma [Unknown]
  - Wheezing [Unknown]
  - Bronchitis [Unknown]
  - Dyspnoea [Unknown]
  - Oedema [Unknown]
  - Fluid retention [Unknown]
